FAERS Safety Report 24881181 (Version 1)
Quarter: 2025Q1

REPORT INFORMATION
  Report Type: Spontaneous
  Country: US (occurrence: US)
  Receive Date: 20250124
  Receipt Date: 20250124
  Transmission Date: 20250408
  Serious: Yes (Other)
  Sender: NOVO NORDISK
  Company Number: US-NOVOPROD-1351861

PATIENT
  Sex: Male

DRUGS (1)
  1. LEVEMIR [Suspect]
     Active Substance: INSULIN DETEMIR
     Indication: Diabetes mellitus
     Dosage: 120 IU, BID
     Route: 058
     Dates: start: 2017

REACTIONS (2)
  - Cataract [Unknown]
  - Cataract operation complication [Not Recovered/Not Resolved]

NARRATIVE: CASE EVENT DATE: 20240101
